FAERS Safety Report 20577757 (Version 5)
Quarter: 2023Q1

REPORT INFORMATION
  Report Type: Report from Study
  Country: JP (occurrence: JP)
  Receive Date: 20220310
  Receipt Date: 20230209
  Transmission Date: 20230417
  Serious: Yes (Other)
  Sender: FDA-Public Use
  Company Number: JP-ASTELLAS-2022JP003938

PATIENT
  Age: 50 Year
  Sex: Male

DRUGS (5)
  1. ENFORTUMAB VEDOTIN [Suspect]
     Active Substance: ENFORTUMAB VEDOTIN
     Indication: Transitional cell carcinoma
     Dosage: 1.25 MG/KG(112 MG), ADMINISTRATION FOR 3 CONSECUTIVE WEEKS AND INTERRUPTION FOR 1 WEEK
     Route: 041
     Dates: start: 20220214
  2. ENFORTUMAB VEDOTIN [Suspect]
     Active Substance: ENFORTUMAB VEDOTIN
     Route: 041
     Dates: start: 20220319, end: 20220319
  3. ENFORTUMAB VEDOTIN [Suspect]
     Active Substance: ENFORTUMAB VEDOTIN
     Dosage: 1.25 MG/KG(112 MG), ADMINISTRATION FOR 3 CONSECUTIVE WEEKS AND INTERRUPTION FOR 1 WEEK
     Route: 041
     Dates: start: 20220322, end: 202205
  4. BETAMETHASONE DIPROPIONATE [Concomitant]
     Active Substance: BETAMETHASONE DIPROPIONATE
     Indication: Skin disorder
     Dosage: UNK UNK, TWICE DAILY
     Route: 050
     Dates: start: 20220228
  5. BILASTINE [Concomitant]
     Active Substance: BILASTINE
     Indication: Skin disorder
     Route: 048
     Dates: start: 20220228

REACTIONS (3)
  - Alopecia [Unknown]
  - Pyrexia [Recovered/Resolved]
  - Duodenal obstruction [Unknown]

NARRATIVE: CASE EVENT DATE: 20220321
